FAERS Safety Report 5490547-1 (Version None)
Quarter: 2007Q4

REPORT INFORMATION
  Report Type: 
  Country: None (occurrence: None)
  Receive Date: 20071019
  Receipt Date: 20071012
  Transmission Date: 20080405
  Serious: Yes (Hospitalization)
  Sender: FDA-Public Use
  Company Number: US-BRISTOL-MYERS SQUIBB COMPANY-13939210

PATIENT
  Sex: Female

DRUGS (4)
  1. DASATINIB [Suspect]
     Indication: NEOPLASM
  2. GEMCITABINE HCL [Suspect]
     Indication: NEOPLASM
     Dates: start: 20071004
  3. AMLODIPINE BESYLATE [Concomitant]
  4. TOPROL-XL [Concomitant]

REACTIONS (5)
  - CONFUSIONAL STATE [None]
  - DEHYDRATION [None]
  - DIARRHOEA [None]
  - NAUSEA [None]
  - VOMITING [None]
